FAERS Safety Report 6757879-8 (Version None)
Quarter: 2010Q2

REPORT INFORMATION
  Report Type: 
  Country: None (occurrence: None)
  Receive Date: 20100524
  Receipt Date: 20100224
  Transmission Date: 20101027
  Serious: No
  Sender: FDA-Public Use
  Company Number: 007836

PATIENT
  Sex: Male

DRUGS (1)
  1. CIMZIA [Suspect]
     Dosage: (SUBCUTANEOUS)
     Route: 058
     Dates: start: 20090101

REACTIONS (4)
  - COUGH [None]
  - NASOPHARYNGITIS [None]
  - PYREXIA [None]
  - URINARY TRACT INFECTION [None]
